FAERS Safety Report 6811472-7 (Version None)
Quarter: 2010Q2

REPORT INFORMATION
  Report Type: 
  Country: None (occurrence: None)
  Receive Date: 20100629
  Receipt Date: 20100629
  Transmission Date: 20101027
  Serious: Yes (Hospitalization)
  Sender: FDA-Public Use
  Company Number: None

PATIENT
  Age: 26 Year
  Sex: Female
  Weight: 37.6486 kg

DRUGS (2)
  1. YAZ [Suspect]
     Indication: ACNE
     Dosage: 1 PILL PER DAY PO
     Route: 048
     Dates: start: 20090217, end: 20100525
  2. YAZ [Suspect]
     Indication: MENSTRUATION IRREGULAR
     Dosage: 1 PILL PER DAY PO
     Route: 048
     Dates: start: 20090217, end: 20100525

REACTIONS (3)
  - ABASIA [None]
  - CHOLELITHIASIS [None]
  - DYSPNOEA [None]
